FAERS Safety Report 9633875 (Version 2)
Quarter: 2013Q4

REPORT INFORMATION
  Report Type: Report from Study
  Country: DE (occurrence: CA)
  Receive Date: 20131021
  Receipt Date: 20131108
  Transmission Date: 20140711
  Serious: Yes (Death)
  Sender: FDA-Public Use
  Company Number: CA-PFIZER INC-2013296240

PATIENT
  Age: 48 Year
  Sex: Female

DRUGS (6)
  1. VENLAFAXINE HCL [Suspect]
     Dosage: UNK
  2. METOCLOPRAMIDE HCL [Suspect]
     Dosage: UNK
  3. OLANZAPINE [Suspect]
     Dosage: UNK
  4. CODEINE [Suspect]
     Dosage: UNK
  5. ETHANOL [Suspect]
     Dosage: UNK
  6. N-DESALKYLFLURAZEPAM [Suspect]

REACTIONS (5)
  - Overdose [Fatal]
  - Breast cancer [Fatal]
  - Asthma [Fatal]
  - Obesity [Fatal]
  - Toxicity to various agents [Fatal]
